FAERS Safety Report 5477256-X (Version None)
Quarter: 2007Q4

REPORT INFORMATION
  Report Type: 
  Country: None (occurrence: None)
  Receive Date: 20071004
  Receipt Date: 20070924
  Transmission Date: 20080405
  Serious: Yes (Other)
  Sender: FDA-Public Use
  Company Number: US-KINGPHARMUSA00001-K200701135

PATIENT

DRUGS (3)
  1. ALTACE [Suspect]
     Indication: HYPERTENSION
     Dates: start: 20070719
  2. FELODIPINE [Suspect]
     Indication: HYPERTENSION
     Dates: start: 20070719
  3. CLARITHROMYCIN [Concomitant]

REACTIONS (4)
  - COUGH [None]
  - FACE INJURY [None]
  - FALL [None]
  - SYNCOPE [None]
